FAERS Safety Report 6918543-5 (Version None)
Quarter: 2010Q3

REPORT INFORMATION
  Report Type: 
  Country: None (occurrence: None)
  Receive Date: 20100722
  Receipt Date: 20100120
  Transmission Date: 20110219
  Serious: Yes (Hospitalization)
  Sender: FDA-Public Use
  Company Number: 2010021886

PATIENT
  Sex: Female
  Weight: 63.5036 kg

DRUGS (4)
  1. PRIVIGEN [Suspect]
     Indication: MULTIPLE SCLEROSIS
     Dosage: (45 G INTRAVENOUS (NOT OTHERWISE SPECIFED) ),
     Route: 042
     Dates: start: 20100112, end: 20100112
  2. PRIVIGEN [Suspect]
  3. OXYCONTIN [Concomitant]
  4. FENTANYL PATCH (FEANTANYL) [Concomitant]

REACTIONS (2)
  - PRURITUS [None]
  - URTICARIA [None]
